FAERS Safety Report 6237899-2 (Version None)
Quarter: 2009Q2

REPORT INFORMATION
  Report Type: 
  Country: None (occurrence: None)
  Receive Date: 20090620
  Receipt Date: 20090608
  Transmission Date: 20091009
  Serious: Yes (Other)
  Sender: FDA-Public Use
  Company Number: AU-MYLANLABS-2009S1010173

PATIENT
  Age: 68 Year
  Sex: Female

DRUGS (5)
  1. METFORMIN HCL [Suspect]
     Indication: DRUG USE FOR UNKNOWN INDICATION
  2. PRITOR /01506701/ [Suspect]
     Indication: DRUG USE FOR UNKNOWN INDICATION
  3. GLIBENCLAMIDE [Concomitant]
  4. LERCANIDIPINE [Concomitant]
  5. INSULIN GLARGINE [Concomitant]

REACTIONS (3)
  - DEHYDRATION [None]
  - LACTIC ACIDOSIS [None]
  - RENAL FAILURE ACUTE [None]
